FAERS Safety Report 19069568 (Version 1)
Quarter: 2021Q1

REPORT INFORMATION
  Report Type: Spontaneous
  Country: US (occurrence: US)
  Receive Date: 20210329
  Receipt Date: 20210329
  Transmission Date: 20210420
  Serious: Yes (Hospitalization)
  Sender: FDA-Public Use
  Company Number: None

PATIENT
  Age: 61 Year
  Sex: Male
  Weight: 65.25 kg

DRUGS (12)
  1. HUMULOG INSULIN [Concomitant]
     Dates: start: 20180918
  2. ATORVASTATIN [Concomitant]
     Active Substance: ATORVASTATIN
  3. CABOMETYX [Concomitant]
     Active Substance: CABOZANTINIB S-MALATE
     Dates: start: 20210225
  4. CASIRIVIMAB?IMDEVIMAB [Suspect]
     Active Substance: CASIRIVIMAB\IMDEVIMAB
     Indication: COVID-19
     Dates: start: 20210323, end: 20210323
  5. LANTUS [Concomitant]
     Active Substance: INSULIN GLARGINE
     Dates: start: 20180918
  6. LIPASE?PROTEASE?AMYLASE CAPSULES [Concomitant]
     Dates: start: 20200626
  7. METOPROLOL SUCCINATE ER [Concomitant]
     Active Substance: METOPROLOL SUCCINATE
     Dates: start: 20190322
  8. SODIUM BICARBONATE. [Concomitant]
     Active Substance: SODIUM BICARBONATE
     Dates: start: 20191203
  9. AMLODIPINE [Concomitant]
     Active Substance: AMLODIPINE BESYLATE
     Dates: start: 20190118
  10. ENTERIC COATED ASPIRIN [Concomitant]
     Active Substance: ASPIRIN
  11. LEVOTHYROXINE. [Concomitant]
     Active Substance: LEVOTHYROXINE
     Dates: start: 20210205
  12. LEVETIRACETAM. [Concomitant]
     Active Substance: LEVETIRACETAM

REACTIONS (9)
  - Atrioventricular block first degree [None]
  - Pulmonary mass [None]
  - Pericardial effusion [None]
  - Tracheal mass [None]
  - Respiratory failure [None]
  - Lung disorder [None]
  - Leukocytosis [None]
  - Haemoglobin decreased [None]
  - QRS axis abnormal [None]

NARRATIVE: CASE EVENT DATE: 20210327
